FAERS Safety Report 11913878 (Version 1)
Quarter: 2016Q1

REPORT INFORMATION
  Report Type: Report from Study
  Country: TW (occurrence: TW)
  Receive Date: 20160113
  Receipt Date: 20160113
  Transmission Date: 20160526
  Serious: Yes (Hospitalization)
  Sender: FDA-Public Use
  Company Number: TW-BRISTOL-MYERS SQUIBB COMPANY-BMS-2016-000181

PATIENT
  Age: 61 Year
  Sex: Male
  Weight: 66 kg

DRUGS (4)
  1. MITOMYCIN. [Suspect]
     Active Substance: MITOMYCIN
     Indication: NASOPHARYNGEAL CANCER
     Dosage: 14.3 MG, UNK
     Route: 065
     Dates: start: 20151110
  2. CETUXIMAB [Suspect]
     Active Substance: CETUXIMAB
     Indication: NASOPHARYNGEAL CANCER
     Dosage: 400 MG, UNK
     Route: 065
     Dates: start: 20151218
  3. CISPLATIN. [Suspect]
     Active Substance: CISPLATIN
     Indication: NASOPHARYNGEAL CANCER
     Dosage: 107 MG, UNK
     Route: 065
     Dates: start: 20151110
  4. EPIRUBICIN [Suspect]
     Active Substance: EPIRUBICIN
     Indication: NASOPHARYNGEAL CANCER
     Dosage: 107 MG, UNK
     Route: 065
     Dates: start: 20151110

REACTIONS (1)
  - White blood cell count decreased [Recovered/Resolved]

NARRATIVE: CASE EVENT DATE: 20151231
